FAERS Safety Report 4948262-6 (Version None)
Quarter: 2006Q1

REPORT INFORMATION
  Report Type: 
  Country: None (occurrence: None)
  Receive Date: 20060127
  Receipt Date: 20050218
  Transmission Date: 20060701
  Serious: Yes (Death)
  Sender: FDA-Public Use
  Company Number: 05-02-0257

PATIENT
  Age: 42 Year
  Sex: Male
  Weight: 95.709 kg

DRUGS (4)
  1. CLOZAPINE [Suspect]
     Dosage: 50-500MG QD, ORAL
     Route: 048
     Dates: start: 19990801, end: 20041201
  2. HALDOL SOLUTAB [Concomitant]
  3. ZOLOFT [Concomitant]
  4. COGENTIN [Concomitant]

REACTIONS (1)
  - DEATH [None]
